FAERS Safety Report 19468198 (Version 1)
Quarter: 2021Q2

REPORT INFORMATION
  Report Type: Spontaneous
  Country: US (occurrence: US)
  Receive Date: 20210628
  Receipt Date: 20210628
  Transmission Date: 20210717
  Serious: No
  Sender: FDA-Public Use
  Company Number: US-BIOVITRUM-2021US2612

PATIENT
  Age: 21 Year
  Sex: Female

DRUGS (2)
  1. KINERET [Suspect]
     Active Substance: ANAKINRA
     Route: 058
     Dates: start: 20200609
  2. KINERET [Suspect]
     Active Substance: ANAKINRA
     Indication: CONNECTIVE TISSUE DISORDER
     Route: 058
     Dates: start: 20190313

REACTIONS (3)
  - Vitamin D decreased [Unknown]
  - Off label use [Unknown]
  - Product dose omission issue [Unknown]

NARRATIVE: CASE EVENT DATE: 20190313
